FAERS Safety Report 6197165-0 (Version None)
Quarter: 2009Q2

REPORT INFORMATION
  Report Type: 
  Country: None (occurrence: None)
  Receive Date: 20090520
  Receipt Date: 20090506
  Transmission Date: 20091009
  Serious: Yes (Other)
  Sender: FDA-Public Use
  Company Number: US-GENENTECH-268964

PATIENT

DRUGS (2)
  1. BEVACIZUMAB [Suspect]
     Indication: NEOPLASM
     Dosage: 10 MG/KG, Q2W
     Route: 042
  2. SORAFENIB [Suspect]
     Indication: NEOPLASM
     Dosage: 200 MG, BID
     Route: 048

REACTIONS (2)
  - PALMAR-PLANTAR ERYTHRODYSAESTHESIA SYNDROME [None]
  - SKIN REACTION [None]
